FAERS Safety Report 7396457-7 (Version None)
Quarter: 2011Q2

REPORT INFORMATION
  Report Type: 
  Country: None (occurrence: None)
  Receive Date: 20110406
  Receipt Date: 20101014
  Transmission Date: 20111010
  Serious: Yes (Hospitalization, Other)
  Sender: FDA-Public Use
  Company Number: US-BAYER-200937151NA

PATIENT
  Sex: Female
  Weight: 97.506 kg

DRUGS (15)
  1. TOPAMAX [Concomitant]
     Dosage: 25 MG, UNK
     Route: 048
  2. ALPRAZOLAM [Concomitant]
     Dosage: 0.25 MG, UNK
     Route: 048
  3. YAZ [Suspect]
     Indication: PREMENSTRUAL SYNDROME
     Dosage: UNK
     Route: 048
     Dates: start: 20050101, end: 20081201
  4. YASMIN [Suspect]
     Indication: CONTRACEPTION
     Dosage: UNK
     Dates: start: 20050101, end: 20081201
  5. ZYRTEC [Concomitant]
     Dosage: 10 MG, UNK
     Route: 048
  6. NADOLOL [Concomitant]
     Dosage: 20 MG, UNK
     Route: 048
  7. YAZ [Suspect]
     Indication: CONTRACEPTION
  8. IMITREX [Concomitant]
     Dosage: 100 MG, UNK
     Route: 048
  9. LEVOTHYROXINE [Concomitant]
     Dosage: VARIOUS
     Route: 048
  10. CITALOPRAM HYDROBROMIDE [Concomitant]
     Dosage: 20 MG, UNK
     Route: 048
  11. SINGULAIR [Concomitant]
     Dosage: 10 MG, UNK
     Route: 048
  12. LORATADINE [Concomitant]
     Dosage: 10 MG, UNK
     Route: 048
  13. PHENTERMINE [Concomitant]
     Dosage: 37.5 MG, UNK
     Route: 048
  14. SEROQUEL [Concomitant]
     Dosage: 100 MG, UNK
     Route: 048
  15. YAZ [Suspect]
     Indication: ACNE

REACTIONS (2)
  - CHOLECYSTITIS CHRONIC [None]
  - CHOLECYSTECTOMY [None]
